FAERS Safety Report 5624906-0 (Version None)
Quarter: 2008Q1

REPORT INFORMATION
  Report Type: 
  Country: None (occurrence: None)
  Receive Date: 20080208
  Receipt Date: 20080130
  Transmission Date: 20080703
  Serious: Yes (Life-Threatening, Hospitalization)
  Sender: FDA-Public Use
  Company Number: 2007BI013932

PATIENT
  Age: 22 Year
  Sex: Male

DRUGS (1)
  1. AVONEX [Suspect]
     Indication: MULTIPLE SCLEROSIS
     Dosage: 30 UG;QW; IM
     Route: 030
     Dates: start: 20070531, end: 20070627

REACTIONS (21)
  - FACIAL BONES FRACTURE [None]
  - FOOT FRACTURE [None]
  - FRACTURED SACRUM [None]
  - HAEMATOMA [None]
  - HAEMORRHAGIC ANAEMIA [None]
  - INTRA-ABDOMINAL HAEMORRHAGE [None]
  - LOWER LIMB FRACTURE [None]
  - LUMBAR VERTEBRAL FRACTURE [None]
  - OSTEOSYNTHESIS [None]
  - PELVIC FRACTURE [None]
  - PLEURAL HAEMORRHAGE [None]
  - PNEUMOTHORAX [None]
  - PSYCHOTIC DISORDER [None]
  - RADIUS FRACTURE [None]
  - RETROPERITONEAL HAEMORRHAGE [None]
  - SPINAL DISORDER [None]
  - SUICIDE ATTEMPT [None]
  - THORACIC VERTEBRAL FRACTURE [None]
  - ULNA FRACTURE [None]
  - UPPER LIMB FRACTURE [None]
  - URINARY TRACT INFECTION [None]
